FAERS Safety Report 12278438 (Version 3)
Quarter: 2016Q3

REPORT INFORMATION
  Report Type: Spontaneous
  Country: US (occurrence: US)
  Receive Date: 20160418
  Receipt Date: 20160707
  Transmission Date: 20161109
  Serious: No
  Sender: FDA-Public Use
  Company Number: US-BAYER-2016-071962

PATIENT
  Sex: Female

DRUGS (1)
  1. CLIMARA PRO [Suspect]
     Active Substance: ESTRADIOL\LEVONORGESTREL
     Indication: HORMONE REPLACEMENT THERAPY
     Dosage: 1 (0.045 MG ESTRADIOL/ 0.015 LEVONORGESTREL) U, OW
     Route: 062
     Dates: start: 2013

REACTIONS (8)
  - Incorrect dose administered by device [None]
  - Product adhesion issue [None]
  - Stress [None]
  - Product shape issue [None]
  - Application site irritation [None]
  - Product physical issue [None]
  - Metrorrhagia [None]
  - Skin disorder [None]
